FAERS Safety Report 9719567 (Version 2)
Quarter: 2015Q4

REPORT INFORMATION
  Report Type: Spontaneous
  Country: US (occurrence: US)
  Receive Date: 20131128
  Receipt Date: 20151102
  Transmission Date: 20160305
  Serious: No
  Sender: FDA-Public Use
  Company Number: US-BIOGENIDEC-2013BI115309

PATIENT
  Age: 43 Year
  Sex: Female

DRUGS (1)
  1. TYSABRI [Suspect]
     Active Substance: NATALIZUMAB
     Indication: MULTIPLE SCLEROSIS
     Route: 042
     Dates: start: 20120109, end: 20130828

REACTIONS (3)
  - Multiple sclerosis [Not Recovered/Not Resolved]
  - Optic neuritis [Not Recovered/Not Resolved]
  - Central nervous system lesion [Unknown]

NARRATIVE: CASE EVENT DATE: 20130901
